FAERS Safety Report 7470037-7 (Version None)
Quarter: 2011Q2

REPORT INFORMATION
  Report Type: 
  Country: None (occurrence: None)
  Receive Date: 20110510
  Receipt Date: 20110504
  Transmission Date: 20111010
  Serious: Yes (Hospitalization)
  Sender: FDA-Public Use
  Company Number: US-B.I. PHARMACEUTICALS,INC./RIDGEFIELD-2011-BP-07482BP

PATIENT
  Age: 72 Year
  Sex: Female

DRUGS (6)
  1. NORVASC [Concomitant]
     Dosage: 5 MG
  2. PRADAXA [Suspect]
     Dates: start: 20110101
  3. METFORMIN HCL [Concomitant]
     Dosage: 500 MG
  4. LEVOTHYROXINE SODIUM [Concomitant]
     Dosage: 75 MCG
  5. CRESTOR [Concomitant]
     Dosage: 20 MG
  6. ASPIRIN [Concomitant]
     Dosage: 81 MG

REACTIONS (1)
  - GASTROINTESTINAL HAEMORRHAGE [None]
